FAERS Safety Report 18867085 (Version 3)
Quarter: 2022Q1

REPORT INFORMATION
  Report Type: Spontaneous
  Country: PL (occurrence: PL)
  Receive Date: 20210208
  Receipt Date: 20220317
  Transmission Date: 20220423
  Serious: Yes (Life-Threatening, Disabling, Other)
  Sender: FDA-Public Use
  Company Number: PL-EMA-DD-20180621-FAIZANEVPROD-155047

PATIENT
  Age: 62 Year
  Sex: Male
  Weight: 137 kg

DRUGS (7)
  1. SERTRALINE [Interacting]
     Active Substance: SERTRALINE HYDROCHLORIDE
     Indication: Insomnia
     Dosage: UNK
     Route: 065
  2. SERTRALINE [Interacting]
     Active Substance: SERTRALINE HYDROCHLORIDE
     Indication: Post stroke depression
  3. ZOLPIDEM [Interacting]
     Active Substance: ZOLPIDEM TARTRATE
     Indication: Insomnia
     Dosage: UNK
     Route: 048
  4. ZOLPIDEM [Interacting]
     Active Substance: ZOLPIDEM TARTRATE
     Indication: Post stroke depression
  5. GINKGO [Interacting]
     Active Substance: GINKGO
     Indication: Cerebrovascular accident
     Dosage: UNK
     Route: 065
  6. WARFARIN SODIUM [Interacting]
     Active Substance: WARFARIN SODIUM
     Indication: Cerebrovascular accident
     Dosage: UNK
     Route: 065
  7. SOTALOL [Concomitant]
     Active Substance: SOTALOL
     Indication: Cerebrovascular accident
     Dosage: UNK
     Route: 065

REACTIONS (3)
  - Apallic syndrome [Unknown]
  - Ischaemic stroke [Unknown]
  - Drug interaction [Unknown]
